FAERS Safety Report 4365431-7 (Version None)
Quarter: 2004Q2

REPORT INFORMATION
  Report Type: 
  Country: None (occurrence: None)
  Receive Date: 20040526
  Receipt Date: 20040526
  Transmission Date: 20050107
  Serious: Yes (Hospitalization)
  Sender: FDA-Public Use
  Company Number: None

PATIENT
  Age: 87 Year
  Sex: Female

DRUGS (8)
  1. SYMBAX 12/25 MG [Suspect]
     Dosage: 12/25 MG PO Q DINNER
     Route: 048
     Dates: start: 20040503, end: 20040507
  2. ASPIRIN [Concomitant]
  3. ALTACE [Concomitant]
  4. NORVASC [Concomitant]
  5. LASIX [Concomitant]
  6. CLONIDINE HCL [Concomitant]
  7. COUMADIN [Concomitant]
  8. RESTORIL [Concomitant]

REACTIONS (1)
  - HYPOTENSION [None]
